FAERS Safety Report 5454326-3 (Version None)
Quarter: 2007Q3

REPORT INFORMATION
  Report Type: 
  Country: None (occurrence: None)
  Receive Date: 20070917
  Receipt Date: 20061121
  Transmission Date: 20080115
  Serious: No
  Sender: FDA-Public Use
  Company Number: US-ASTRAZENECA-2006UW17937

PATIENT
  Age: 76 Year
  Sex: Female
  Weight: 48.1 kg

DRUGS (1)
  1. SEROQUEL [Suspect]
     Indication: ANXIETY
     Dosage: 50 MG - 100 MG
     Route: 048

REACTIONS (5)
  - ANXIETY [None]
  - CONSTIPATION [None]
  - DYSPHONIA [None]
  - SEDATION [None]
  - WEIGHT DECREASED [None]
